FAERS Safety Report 11233146 (Version 2)
Quarter: 2015Q3

REPORT INFORMATION
  Report Type: Report from Study
  Country: JP (occurrence: JP)
  Receive Date: 20150701
  Receipt Date: 20150728
  Transmission Date: 20151125
  Serious: Yes (Hospitalization)
  Sender: FDA-Public Use
  Company Number: JP-SHIONOGI, INC-2015000510

PATIENT
  Age: 1 Year
  Sex: Male
  Weight: 9.9 kg

DRUGS (17)
  1. FINIBAX [Suspect]
     Active Substance: DORIPENEM MONOHYDRATE
     Indication: SEPSIS
     Dosage: 400 MG, TID
     Route: 041
     Dates: start: 20140814, end: 20140816
  2. SOLU-CORTEF [Concomitant]
     Active Substance: HYDROCORTISONE SODIUM SUCCINATE
     Indication: URTICARIA
     Dosage: UNK UNK, PRN
     Route: 065
     Dates: start: 20140815, end: 20140815
  3. XYLOCAINE [Concomitant]
     Active Substance: LIDOCAINE HYDROCHLORIDE
     Indication: PROPHYLAXIS
     Dosage: UNK UNK, PRN
     Route: 065
     Dates: start: 20140816, end: 20140816
  4. RAVONAL [Concomitant]
     Active Substance: THIOPENTAL
     Indication: PROPHYLAXIS
     Dosage: 12.5 MG, QD
     Route: 065
     Dates: start: 20140816, end: 20140816
  5. PENTAGIN                           /00052102/ [Concomitant]
     Active Substance: PENTAZOCINE HYDROCHLORIDE
     Indication: PROPHYLAXIS
     Dosage: 3 MG, QD
     Route: 065
     Dates: start: 20140816, end: 20140816
  6. LASIX [Concomitant]
     Active Substance: FUROSEMIDE
     Indication: SEPTIC SHOCK
     Dosage: UNK UNK, PRN
     Route: 065
     Dates: start: 20140814, end: 20140814
  7. GAMMAGARD [Concomitant]
     Active Substance: HUMAN IMMUNOGLOBULIN G
     Indication: SEPSIS
     Dosage: 2.5 G, QD
     Route: 065
     Dates: start: 20140814, end: 20140814
  8. GRAN [Concomitant]
     Active Substance: FILGRASTIM
     Indication: SEPSIS
     Dosage: 75 ?G, QD
     Route: 065
     Dates: start: 20140814, end: 20140825
  9. GRAN [Concomitant]
     Active Substance: FILGRASTIM
     Indication: NEUTROPENIA
  10. POLARAMINE [Concomitant]
     Active Substance: DEXCHLORPHENIRAMINE MALEATE
     Indication: URTICARIA
     Dosage: UNK UNK, PRN
     Route: 065
     Dates: start: 20140815, end: 20140822
  11. TEICOPLANIN [Concomitant]
     Active Substance: TEICOPLANIN
     Indication: SEPSIS
     Dosage: 100 MG, QD
     Route: 065
     Dates: start: 20140814, end: 20140829
  12. BAKTAR [Concomitant]
     Active Substance: SULFAMETHOXAZOLE\TRIMETHOPRIM
     Indication: PROPHYLAXIS
     Dosage: 1 G, BID
     Route: 048
     Dates: start: 20140820
  13. DORMICUM                           /00634101/ [Concomitant]
     Active Substance: MIDAZOLAM\MIDAZOLAM HYDROCHLORIDE
     Indication: PROPHYLAXIS
     Dosage: 2 MG, QD
     Route: 065
     Dates: start: 20140816, end: 20140816
  14. DIFLUCAN [Concomitant]
     Active Substance: FLUCONAZOLE
     Indication: PROPHYLAXIS
     Dosage: 100 MG, QD
     Route: 048
     Dates: start: 20140816, end: 20140825
  15. CEFTAZIDIME. [Concomitant]
     Active Substance: CEFTAZIDIME
     Indication: SEPSIS
     Dosage: 500 MG, TID
     Route: 065
     Dates: start: 20140814, end: 20140829
  16. CIPROFLOXACIN. [Concomitant]
     Active Substance: CIPROFLOXACIN
     Indication: SEPSIS
     Dosage: 100 MG, BID
     Route: 065
     Dates: start: 20140816, end: 20140825
  17. KAKODIN [Concomitant]
     Indication: SEPTIC SHOCK
     Dosage: UNK
     Route: 065
     Dates: start: 20140814, end: 20140815

REACTIONS (3)
  - Urticaria [Recovered/Resolved]
  - Diarrhoea [Recovered/Resolved]
  - Neutropenia [Recovered/Resolved]

NARRATIVE: CASE EVENT DATE: 20140815
